FAERS Safety Report 15029361 (Version 1)
Quarter: 2018Q2

REPORT INFORMATION
  Report Type: Spontaneous
  Country: FR (occurrence: FR)
  Receive Date: 20180619
  Receipt Date: 20180619
  Transmission Date: 20180711
  Serious: Yes (Other)
  Sender: FDA-Public Use
  Company Number: PHHY2018FR024874

PATIENT
  Age: 70 Year
  Sex: Female

DRUGS (1)
  1. SPIRAMYCIN+METRONIDAZOLE SANDOZ [Suspect]
     Active Substance: METRONIDAZOLE\SPIRAMYCIN
     Indication: SINUSITIS
     Dosage: 2 DF, UNK (1.5 M.U./250 MG)
     Route: 048

REACTIONS (1)
  - Agranulocytosis [Not Recovered/Not Resolved]

NARRATIVE: CASE EVENT DATE: 20180313
